FAERS Safety Report 16062274 (Version 1)
Quarter: 2019Q1

REPORT INFORMATION
  Report Type: Spontaneous
  Country: US (occurrence: US)
  Receive Date: 20190211
  Receipt Date: 20190211
  Transmission Date: 20190418
  Serious: Yes (Disabling)
  Sender: FDA-Public Use
  Company Number: None

PATIENT
  Age: 65 Year
  Sex: Female
  Weight: 83.25 kg

DRUGS (5)
  1. MOXIFLOXACIN OPHTHALMIC SOLUTION 0.5% [Suspect]
     Active Substance: MOXIFLOXACIN
     Indication: PREOPERATIVE CARE
     Dosage: ?          QUANTITY:1 DROP(S);?
     Route: 047
     Dates: start: 20190202, end: 20190203
  2. MOXIFLOXACIN OPHTHALMIC SOLUTION 0.5% [Suspect]
     Active Substance: MOXIFLOXACIN
     Indication: CATARACT OPERATION
     Dosage: ?          QUANTITY:1 DROP(S);?
     Route: 047
     Dates: start: 20190202, end: 20190203
  3. VITAMIN D [Concomitant]
     Active Substance: CHOLECALCIFEROL
  4. CALCIUM/MAGNESIUM/ZINC SUPPLEMENT [Concomitant]
  5. CIPROFLOXACIN. [Suspect]
     Active Substance: CIPROFLOXACIN

REACTIONS (17)
  - Paraesthesia [None]
  - Neuropathy peripheral [None]
  - Tinnitus [None]
  - Vertigo [None]
  - Vitamin D deficiency [None]
  - Bone pain [None]
  - Grip strength [None]
  - Asthenia [None]
  - Gait inability [None]
  - Hypoaesthesia oral [None]
  - Tenderness [None]
  - Depressed level of consciousness [None]
  - Disturbance in attention [None]
  - Eye pain [None]
  - Hypoaesthesia [None]
  - Aphasia [None]
  - Musculoskeletal pain [None]

NARRATIVE: CASE EVENT DATE: 20190203
